FAERS Safety Report 5718508-5 (Version None)
Quarter: 2008Q2

REPORT INFORMATION
  Report Type: 
  Country: None (occurrence: None)
  Receive Date: 20080425
  Receipt Date: 20080415
  Transmission Date: 20081010
  Serious: Yes (Death, Life-Threatening)
  Sender: FDA-Public Use
  Company Number: JP-WYE-H03790608

PATIENT
  Sex: Female

DRUGS (17)
  1. AMIODARONE HCL [Suspect]
     Indication: VENTRICULAR TACHYCARDIA
     Dosage: 1.25 MG/L @ 10 ML/MIN, THEN 1.5 MG/L @ 33 ML/MIN, THEN 1.5 MG/L @ 17 ML/MIN
     Route: 042
     Dates: start: 20070921, end: 20070927
  2. ALLOPURINOL [Suspect]
  3. LASIX [Suspect]
     Dosage: 480 MG TO 120 MG/DAY
     Route: 042
     Dates: start: 20070917, end: 20070928
  4. ALDACTONE [Suspect]
  5. LANSOPRAZOLE [Suspect]
     Indication: GASTRITIS PROPHYLAXIS
     Route: 048
  6. WARFARIN SODIUM [Suspect]
     Route: 048
  7. ASPIRIN [Suspect]
     Route: 048
  8. BLOPRESS [Suspect]
     Route: 048
  9. ARTIST [Suspect]
     Dosage: 1.25 MG 2/3 TEIMS DAILYO
  10. ITOROL [Suspect]
     Route: 048
  11. BROTIZOLAM [Suspect]
  12. SIGMART [Suspect]
     Dosage: 144 ML
     Route: 042
  13. SIGMART [Suspect]
     Route: 048
  14. MEVALOTIN [Suspect]
  15. PANALDINE [Concomitant]
     Route: 048
     Dates: start: 20070920
  16. VASOLAN [Concomitant]
     Indication: VENTRICULAR TACHYCARDIA
     Dosage: 5 MG
     Route: 042
     Dates: start: 20070921
  17. AMIODARONE HCL [Suspect]
     Route: 048
     Dates: start: 20070927

REACTIONS (3)
  - AGRANULOCYTOSIS [None]
  - CARDIAC FAILURE [None]
  - CONDITION AGGRAVATED [None]
